FAERS Safety Report 6401046-4 (Version None)
Quarter: 2009Q4

REPORT INFORMATION
  Report Type: 
  Country: None (occurrence: None)
  Receive Date: 20091013
  Receipt Date: 20091013
  Transmission Date: 20100525
  Serious: Yes (Other)
  Sender: FDA-Public Use
  Company Number: None

PATIENT
  Sex: Male
  Weight: 3.2 kg

DRUGS (1)
  1. GENTAK [Suspect]
     Indication: INFECTION PROPHYLAXIS
     Dosage: SINGLE DOSE AT BIRTH TOP
     Route: 061
     Dates: start: 20091006, end: 20091006

REACTIONS (5)
  - EXCORIATION [None]
  - EYELID BLEEDING [None]
  - EYELID DISORDER [None]
  - EYELID OEDEMA [None]
  - VISUAL IMPAIRMENT [None]
